FAERS Safety Report 6555908-8 (Version None)
Quarter: 2010Q1

REPORT INFORMATION
  Report Type: 
  Country: None (occurrence: None)
  Receive Date: 20100128
  Receipt Date: 20100119
  Transmission Date: 20100710
  Serious: Yes (Hospitalization)
  Sender: FDA-Public Use
  Company Number: IT-GENENTECH-297227

PATIENT

DRUGS (3)
  1. MABTHERA [Suspect]
     Indication: B-CELL LYMPHOMA
     Dosage: 375 MG/M2, UNK
     Route: 042
     Dates: start: 20090430, end: 20090625
  2. ENDOXAN [Suspect]
     Indication: PRIMARY MEDIASTINAL LARGE B-CELL LYMPHOMA
     Dosage: 350 MG/M2, UNK
     Route: 042
     Dates: start: 20090423, end: 20090618
  3. DOXORUBICIN HCL [Suspect]
     Indication: PRIMARY MEDIASTINAL LARGE B-CELL LYMPHOMA
     Dosage: 50 MG/M2, UNK
     Route: 042
     Dates: start: 20090423, end: 20090702

REACTIONS (4)
  - ANAEMIA [None]
  - DEVICE RELATED SEPSIS [None]
  - LUNG INFECTION [None]
  - PULMONARY EMBOLISM [None]
